FAERS Safety Report 7028256-X (Version None)
Quarter: 2010Q4

REPORT INFORMATION
  Report Type: 
  Country: None (occurrence: None)
  Receive Date: 20101005
  Receipt Date: 20100923
  Transmission Date: 20110411
  Serious: Yes (Other)
  Sender: FDA-Public Use
  Company Number: FI-PFIZER INC-2010113184

PATIENT
  Sex: Female

DRUGS (1)
  1. LYRICA [Suspect]
     Indication: NEURALGIA
     Dosage: UNK

REACTIONS (6)
  - CHEST PAIN [None]
  - DISTURBANCE IN ATTENTION [None]
  - DIZZINESS [None]
  - EYE PAIN [None]
  - LACRIMATION INCREASED [None]
  - VISION BLURRED [None]
